FAERS Safety Report 15234256 (Version 2)
Quarter: 2018Q3

REPORT INFORMATION
  Report Type: Spontaneous
  Country: MX (occurrence: MX)
  Receive Date: 20180803
  Receipt Date: 20180807
  Transmission Date: 20181010
  Serious: Yes (Other)
  Sender: FDA-Public Use
  Company Number: MX-STRIDES ARCOLAB LIMITED-2018SP006428

PATIENT

DRUGS (2)
  1. PRAMIPEXOLE DIHYDROCHLORIDE. [Suspect]
     Active Substance: PRAMIPEXOLE DIHYDROCHLORIDE
     Dosage: 0.5 MG, EVERYDAY SIX TABLETS
     Route: 065
  2. PRAMIPEXOLE DIHYDROCHLORIDE. [Suspect]
     Active Substance: PRAMIPEXOLE DIHYDROCHLORIDE
     Indication: PARKINSON^S DISEASE
     Dosage: 0.375 MG, EXTENDED RELEASE DAILY WITH INCREASING DOSE EVERY MONTH UP TO 3MG
     Route: 065

REACTIONS (4)
  - Pituitary haemorrhage [Unknown]
  - Dizziness [Unknown]
  - Intentional product misuse [Unknown]
  - Headache [Unknown]
